FAERS Safety Report 5323815-4 (Version None)
Quarter: 2007Q2

REPORT INFORMATION
  Report Type: 
  Country: None (occurrence: None)
  Receive Date: 20070509
  Receipt Date: 20070509
  Transmission Date: 20071010
  Serious: Yes (Hospitalization)
  Sender: FDA-Public Use
  Company Number: None

PATIENT
  Sex: Female
  Weight: 64.5 kg

DRUGS (4)
  1. TEMOZOLOMIDE [Suspect]
     Dosage: 4875 MG
  2. DECADRON [Concomitant]
  3. PAXIL [Concomitant]
  4. TRAZODONE HCL [Concomitant]

REACTIONS (5)
  - ASTHENIA [None]
  - CONFUSIONAL STATE [None]
  - MENTAL STATUS CHANGES [None]
  - ORAL CANDIDIASIS [None]
  - WEIGHT DECREASED [None]
